FAERS Safety Report 24428832 (Version 2)
Quarter: 2024Q4

REPORT INFORMATION
  Report Type: Spontaneous
  Country: US (occurrence: US)
  Receive Date: 20241011
  Receipt Date: 20241105
  Transmission Date: 20250115
  Serious: No
  Sender: IPSEN BIOPHARMACEUTICALS, INC.
  Company Number: US-IPSEN Group, Research and Development-2024-20084

PATIENT
  Sex: Female

DRUGS (8)
  1. IQIRVO [Suspect]
     Active Substance: ELAFIBRANOR
     Indication: Primary biliary cholangitis
     Route: 048
     Dates: start: 20240813
  2. ATORVASTATIN [Concomitant]
     Active Substance: ATORVASTATIN
  3. DICYCLOMINE [Concomitant]
     Active Substance: DICYCLOMINE HYDROCHLORIDE
  4. ELETRIPTAN [Concomitant]
     Active Substance: ELETRIPTAN
  5. LISINOPRIL [Concomitant]
     Active Substance: LISINOPRIL
  6. MISALAMINE [Concomitant]
  7. METOPROL SUC [Concomitant]
  8. URSODIOL [Concomitant]
     Active Substance: URSODIOL

REACTIONS (4)
  - Constipation [Unknown]
  - Nausea [Unknown]
  - Vomiting [Unknown]
  - Weight decreased [Unknown]
